FAERS Safety Report 8928935 (Version 1)
Quarter: 2012Q4

REPORT INFORMATION
  Report Type: Spontaneous
  Country: DK (occurrence: None)
  Receive Date: 20121120
  Receipt Date: 20121120
  Transmission Date: 20130627
  Serious: Yes (Death)
  Sender: FDA-Public Use
  Company Number: 2012MA013451

PATIENT
  Age: 73 Year
  Sex: Male

DRUGS (6)
  1. GEMCITABINE HYDROCHLORIDE [Suspect]
     Indication: ADJUVANT THERAPY
     Route: 042
     Dates: start: 20120507, end: 20120907
  2. WARFARIN [Concomitant]
  3. BISOPROLOL [Concomitant]
  4. CREON [Concomitant]
  5. LOPERAMIDE [Concomitant]
  6. GRANISETRON [Concomitant]

REACTIONS (8)
  - Pneumonitis [None]
  - Thrombosis [None]
  - Malaise [None]
  - Dyspnoea [None]
  - Peripheral ischaemia [None]
  - Hypoxia [None]
  - General physical health deterioration [None]
  - Leg amputation [None]
